FAERS Safety Report 25640349 (Version 1)
Quarter: 2025Q3

REPORT INFORMATION
  Report Type: Spontaneous
  Country: EU (occurrence: EU)
  Receive Date: 20250804
  Receipt Date: 20250804
  Transmission Date: 20251020
  Serious: Yes (Hospitalization, Other)
  Sender: SANDOZ
  Company Number: EU-002147023-NVSC2021HR244114

PATIENT
  Sex: Female

DRUGS (8)
  1. BENDAMUSTINE [Suspect]
     Active Substance: BENDAMUSTINE
     Indication: Product used for unknown indication
     Route: 065
  2. FILGRASTIM [Suspect]
     Active Substance: FILGRASTIM
     Indication: Product used for unknown indication
     Route: 065
  3. POLATUZUMAB VEDOTIN [Suspect]
     Active Substance: POLATUZUMAB VEDOTIN
     Indication: Product used for unknown indication
     Route: 065
  4. RITUXIMAB [Suspect]
     Active Substance: RITUXIMAB
     Indication: Non-Hodgkin^s lymphoma
     Route: 065
  5. RITUXIMAB [Suspect]
     Active Substance: RITUXIMAB
     Indication: Diffuse large B-cell lymphoma
  6. ALBUMIN HUMAN [Concomitant]
     Active Substance: ALBUMIN HUMAN
     Indication: Product used for unknown indication
     Route: 065
  7. AMIODARONE [Concomitant]
     Active Substance: AMIODARONE
     Indication: Product used for unknown indication
     Route: 065
  8. LEVOTHYROXINE [Concomitant]
     Active Substance: LEVOTHYROXINE
     Indication: Product used for unknown indication
     Route: 065

REACTIONS (45)
  - Rectal haemorrhage [Recovered/Resolved]
  - Rectal haemorrhage [Unknown]
  - Hypercalcaemia [Unknown]
  - Febrile neutropenia [Unknown]
  - Cardiac failure [Recovered/Resolved]
  - Atrial fibrillation [Unknown]
  - Dyspnoea [Unknown]
  - Bone marrow infiltration [Unknown]
  - Lung disorder [Unknown]
  - Haemorrhage [Unknown]
  - Hyperkalaemia [Unknown]
  - Thrombocytopenia [Unknown]
  - Pancytopenia [Unknown]
  - Morganella infection [Unknown]
  - Clostridium difficile colitis [Unknown]
  - Hypocalcaemia [Unknown]
  - Pyrexia [Recovered/Resolved]
  - Diarrhoea [Recovered/Resolved]
  - Hypomagnesaemia [Unknown]
  - Renal injury [Unknown]
  - Urinary tract infection [Unknown]
  - Lymphadenopathy [Unknown]
  - Anaemia [Unknown]
  - Shock haemorrhagic [Unknown]
  - Large intestinal ulcer [Unknown]
  - Hilar lymphadenopathy [Unknown]
  - Diffuse large B-cell lymphoma recurrent [Unknown]
  - Lymphadenopathy mediastinal [Unknown]
  - Hepatomegaly [Unknown]
  - Splenomegaly [Unknown]
  - Polyp [Unknown]
  - Adenoma benign [Unknown]
  - Coagulopathy [Unknown]
  - Hypotension [Unknown]
  - Livedo reticularis [Unknown]
  - Mucosal inflammation [Unknown]
  - Hypoalbuminaemia [Unknown]
  - Polyuria [Unknown]
  - Tri-iodothyronine free decreased [Unknown]
  - Blood thyroid stimulating hormone increased [Unknown]
  - Hiatus hernia [Unknown]
  - Kidney malrotation [Unknown]
  - Pain in extremity [Unknown]
  - General physical health deterioration [Unknown]
  - Osteosclerosis [Unknown]

NARRATIVE: CASE EVENT DATE: 20210401
